FAERS Safety Report 18088952 (Version 1)
Quarter: 2020Q3

REPORT INFORMATION
  Report Type: Spontaneous
  Country: EG (occurrence: EG)
  Receive Date: 20200729
  Receipt Date: 20200729
  Transmission Date: 20201103
  Serious: Yes (Death, Hospitalization)
  Sender: FDA-Public Use
  Company Number: NVSC2020EG212193

PATIENT
  Sex: Male

DRUGS (2)
  1. CATAFLAM [Suspect]
     Active Substance: DICLOFENAC POTASSIUM
     Indication: BONE PAIN
     Dosage: UNK (3 TIMES PER WEEK)
     Route: 048
     Dates: end: 2017
  2. CATAFLAM [Suspect]
     Active Substance: DICLOFENAC POTASSIUM
     Indication: TOOTHACHE

REACTIONS (5)
  - Renal failure [Fatal]
  - Peptic ulcer [Not Recovered/Not Resolved]
  - Cardiac failure [Fatal]
  - Dysuria [Not Recovered/Not Resolved]
  - Creatinine renal clearance abnormal [Fatal]

NARRATIVE: CASE EVENT DATE: 2013
